FAERS Safety Report 10555070 (Version 3)
Quarter: 2014Q4

REPORT INFORMATION
  Report Type: Spontaneous
  Country: PT (occurrence: PT)
  Receive Date: 20141030
  Receipt Date: 20141112
  Transmission Date: 20150529
  Serious: Yes (Other)
  Sender: FDA-Public Use
  Company Number: PT-BRISTOL-MYERS SQUIBB COMPANY-21510698

PATIENT

DRUGS (1)
  1. ATAZANAVIR [Suspect]
     Active Substance: ATAZANAVIR

REACTIONS (1)
  - Hepatitis cholestatic [Unknown]
